FAERS Safety Report 12830617 (Version 2)
Quarter: 2017Q2

REPORT INFORMATION
  Report Type: Spontaneous
  Country: US (occurrence: US)
  Receive Date: 20161007
  Receipt Date: 20170622
  Transmission Date: 20170830
  Serious: Yes (Other)
  Sender: FDA-Public Use
  Company Number: US-LUNDBECK-DKLU2020169

PATIENT
  Age: 68 Year
  Sex: Male

DRUGS (4)
  1. NORTHERA [Suspect]
     Active Substance: DROXIDOPA
     Indication: AUTONOMIC NEUROPATHY
     Dosage: TITRATION SCHEDULE C (TITRATING)
     Route: 065
     Dates: start: 20160903
  2. NORTHERA [Suspect]
     Active Substance: DROXIDOPA
     Route: 065
     Dates: start: 20160925, end: 20160925
  3. NORTHERA [Suspect]
     Active Substance: DROXIDOPA
     Dosage: SCHEDULE C AND TITRATING
     Route: 065
  4. NORTHERA [Suspect]
     Active Substance: DROXIDOPA
     Route: 065
     Dates: start: 20160926

REACTIONS (5)
  - Epistaxis [Recovered/Resolved]
  - Haemoptysis [Recovered/Resolved]
  - Feeling abnormal [Unknown]
  - Hypotension [Not Recovered/Not Resolved]
  - Blood pressure increased [Recovered/Resolved]

NARRATIVE: CASE EVENT DATE: 20160925
